FAERS Safety Report 15201592 (Version 1)
Quarter: 2018Q3

REPORT INFORMATION
  Report Type: Spontaneous
  Country: US (occurrence: US)
  Receive Date: 20180726
  Receipt Date: 20180726
  Transmission Date: 20181010
  Serious: No
  Sender: FDA-Public Use
  Company Number: US-ACCORD-066830

PATIENT
  Age: 68 Year
  Sex: Female
  Weight: 54.88 kg

DRUGS (1)
  1. LETROZOLE. [Suspect]
     Active Substance: LETROZOLE
     Indication: BREAST CANCER
     Route: 048
     Dates: start: 20171226

REACTIONS (2)
  - Hypertension [Unknown]
  - Head discomfort [Unknown]

NARRATIVE: CASE EVENT DATE: 20180127
